FAERS Safety Report 10151603 (Version 3)
Quarter: 2014Q2

REPORT INFORMATION
  Report Type: Spontaneous
  Country: JP (occurrence: JP)
  Receive Date: 20140505
  Receipt Date: 20140523
  Transmission Date: 20141212
  Serious: Yes (Life-Threatening, Other)
  Sender: FDA-Public Use
  Company Number: JP-009507513-1404JPN011565

PATIENT
  Age: 52 Year
  Sex: Female

DRUGS (7)
  1. TEMODAL [Suspect]
     Indication: ANAPLASTIC ASTROCYTOMA
     Dosage: 75 MG/M2, QD
     Route: 048
     Dates: start: 20140326, end: 20140413
  2. TEMODAL [Suspect]
     Dosage: 75 MG/M2, QD
     Route: 048
     Dates: start: 20140415
  3. WARFARIN [Suspect]
     Indication: ANTICOAGULANT THERAPY
     Dosage: 3.5 MG, QD
     Route: 048
     Dates: start: 20140326, end: 20140413
  4. WARFARIN [Suspect]
     Dosage: UNK, UNKNOWN
     Route: 048
  5. GASTER [Concomitant]
     Dosage: 20 MG, BID
     Route: 042
     Dates: start: 20140403
  6. SODIUM CHLORIDE [Concomitant]
     Dosage: 20 ML, BID
     Route: 042
     Dates: start: 20140403
  7. SOLULACT [Concomitant]
     Dosage: DOSING RATE: 500ML/6 HOUR,500ML, 1 DAY
     Route: 042
     Dates: start: 20140403

REACTIONS (2)
  - Pulmonary artery thrombosis [Recovering/Resolving]
  - Deep vein thrombosis [Recovering/Resolving]
